FAERS Safety Report 9039715 (Version 1)
Quarter: 2013Q1

REPORT INFORMATION
  Report Type: Report from Study
  Country: US (occurrence: US)
  Receive Date: 20130130
  Receipt Date: 20130130
  Transmission Date: 20140127
  Serious: No
  Sender: FDA-Public Use
  Company Number: US-ABBOTT-12P-163-0949839-00

PATIENT
  Age: 75 Year
  Sex: Female

DRUGS (13)
  1. HUMIRA 40 MG/0.8 ML PEN [Suspect]
     Indication: RHEUMATOID ARTHRITIS
  2. SEROQUEL [Concomitant]
     Indication: DEPRESSION
  3. ARACEPT [Concomitant]
     Indication: MEMORY IMPAIRMENT
  4. NAMENDA [Concomitant]
     Indication: MEMORY IMPAIRMENT
  5. PROCERA AVH [Concomitant]
     Indication: PRODUCT USED FOR UNKNOWN INDICATION
     Dosage: AT BEDTIME, MAIL ORDER FROM CALIFORNIA
  6. LIPITOR [Concomitant]
     Indication: BLOOD CHOLESTEROL INCREASED
  7. FOLIC ACID [Concomitant]
     Indication: VITAMIN SUPPLEMENTATION
  8. VITAMIN D4 [Concomitant]
     Indication: VITAMIN SUPPLEMENTATION
  9. FERROUS SULFATE [Concomitant]
     Indication: PRODUCT USED FOR UNKNOWN INDICATION
     Dosage: ONE IN MORNING AND TWO AT NIGHT
  10. FISH OIL [Concomitant]
     Indication: VITAMIN SUPPLEMENTATION
     Dosage: 1200 MILLIGRAM
  11. ASPIRIN [Concomitant]
     Indication: PRODUCT USED FOR UNKNOWN INDICATION
     Dosage: AT BEDTIME
  12. SUPER B COMPLEX WITH VITAMIN C [Concomitant]
     Indication: SUPPLEMENTATION THERAPY
  13. BENAZEPRIL [Concomitant]
     Indication: PRODUCT USED FOR UNKNOWN INDICATION

REACTIONS (1)
  - Drug ineffective [Not Recovered/Not Resolved]
